FAERS Safety Report 5043712-1 (Version None)
Quarter: 2006Q2

REPORT INFORMATION
  Report Type: 
  Country: None (occurrence: None)
  Receive Date: 20060601
  Receipt Date: 20060126
  Transmission Date: 20061013
  Serious: No
  Sender: FDA-Public Use
  Company Number: 2006PV007728

PATIENT
  Age: 66 Year
  Sex: Female
  Weight: 106.5953 kg

DRUGS (4)
  1. BYETTA [Suspect]
     Indication: DIABETES MELLITUS NON-INSULIN-DEPENDENT
     Dosage: 5 MCG;BID;SC
     Route: 058
     Dates: start: 20051229
  2. METFORMIN [Concomitant]
  3. ACTOS /USA/ [Concomitant]
  4. LANTUS [Concomitant]

REACTIONS (9)
  - CHILLS [None]
  - DECREASED APPETITE [None]
  - ERUCTATION [None]
  - FATIGUE [None]
  - FLATULENCE [None]
  - HEADACHE [None]
  - NAUSEA [None]
  - STOMACH DISCOMFORT [None]
  - WEIGHT DECREASED [None]
